FAERS Safety Report 6492523-9 (Version None)
Quarter: 2009Q4

REPORT INFORMATION
  Report Type: 
  Country: None (occurrence: None)
  Receive Date: 20091214
  Receipt Date: 20091204
  Transmission Date: 20100525
  Serious: Yes (Hospitalization)
  Sender: FDA-Public Use
  Company Number: LT-ROCHE-673476

PATIENT
  Age: 70 Year
  Sex: Male

DRUGS (2)
  1. PEGASYS [Suspect]
     Indication: HEPATITIS C
     Dosage: DOSAGE NUMBER: 180.
     Route: 065
     Dates: start: 20090829
  2. COPEGUS [Suspect]
     Indication: HEPATITIS C
     Dosage: DOSAGE NUMBER: 1200.
     Route: 065
     Dates: start: 20090829

REACTIONS (1)
  - PANCYTOPENIA [None]
